FAERS Safety Report 5455220-4 (Version None)
Quarter: 2007Q3

REPORT INFORMATION
  Report Type: 
  Country: None (occurrence: None)
  Receive Date: 20070918
  Receipt Date: 20070907
  Transmission Date: 20080115
  Serious: Yes (Hospitalization)
  Sender: FDA-Public Use
  Company Number: FI-JNJFOC-20070901598

PATIENT
  Sex: Female

DRUGS (10)
  1. REMICADE [Suspect]
     Indication: RHEUMATOID ARTHRITIS
     Route: 042
  2. METHOTREXATE [Concomitant]
     Indication: RHEUMATOID ARTHRITIS
     Route: 048
  3. ACTIVELLE [Concomitant]
     Indication: HORMONE REPLACEMENT THERAPY
     Route: 048
  4. COZAAR [Concomitant]
     Indication: BLOOD PRESSURE
  5. TUBILYSIN [Concomitant]
     Indication: DISSEMINATED TUBERCULOSIS
  6. RIFAMPIN [Concomitant]
     Indication: DISSEMINATED TUBERCULOSIS
  7. DISAMID [Concomitant]
     Indication: DISSEMINATED TUBERCULOSIS
  8. ORIBUTOL [Concomitant]
     Indication: DISSEMINATED TUBERCULOSIS
  9. HEXAVIT [Concomitant]
     Indication: DISSEMINATED TUBERCULOSIS
  10. PREDNISOLONE [Concomitant]

REACTIONS (2)
  - DISSEMINATED TUBERCULOSIS [None]
  - HYPERCALCAEMIA [None]
